FAERS Safety Report 16250255 (Version 1)
Quarter: 2019Q2

REPORT INFORMATION
  Report Type: Spontaneous
  Country: US (occurrence: US)
  Receive Date: 20190429
  Receipt Date: 20190429
  Transmission Date: 20190711
  Serious: Yes (Hospitalization)
  Sender: FDA-Public Use
  Company Number: US-ABBVIE-19S-163-2628079-00

PATIENT
  Age: 48 Year
  Sex: Male
  Weight: 106.69 kg

DRUGS (4)
  1. DONEPEZIL. [Concomitant]
     Active Substance: DONEPEZIL
     Indication: MEMORY IMPAIRMENT
  2. ANDROGEL [Suspect]
     Active Substance: TESTOSTERONE
     Indication: BLOOD TESTOSTERONE DECREASED
     Route: 061
     Dates: start: 2017, end: 2017
  3. PREVACID [Concomitant]
     Active Substance: LANSOPRAZOLE
     Indication: GASTROOESOPHAGEAL REFLUX DISEASE
  4. CYMBALTA [Concomitant]
     Active Substance: DULOXETINE HYDROCHLORIDE
     Indication: DEPRESSION

REACTIONS (2)
  - Prostatic specific antigen increased [Unknown]
  - Prostate cancer [Recovered/Resolved]

NARRATIVE: CASE EVENT DATE: 201706
